FAERS Safety Report 6802962-1 (Version None)
Quarter: 2010Q2

REPORT INFORMATION
  Report Type: 
  Country: None (occurrence: None)
  Receive Date: 20100628
  Receipt Date: 20100621
  Transmission Date: 20101027
  Serious: Yes (Other)
  Sender: FDA-Public Use
  Company Number: FR-AMGEN-KDL419553

PATIENT
  Age: 76 Year
  Sex: Female

DRUGS (1)
  1. VECTIBIX [Suspect]
     Indication: DRUG USE FOR UNKNOWN INDICATION
     Dates: start: 20100531

REACTIONS (2)
  - ACNE [None]
  - SKIN HAEMORRHAGE [None]
